FAERS Safety Report 24805390 (Version 1)
Quarter: 2025Q1

REPORT INFORMATION
  Report Type: Spontaneous
  Country: US (occurrence: US)
  Receive Date: 20250103
  Receipt Date: 20250103
  Transmission Date: 20250408
  Serious: No
  Sender: MERCK
  Company Number: US-009507513-2412USA005150

PATIENT
  Age: 33 Year
  Sex: Male

DRUGS (1)
  1. KEYTRUDA [Suspect]
     Active Substance: PEMBROLIZUMAB

REACTIONS (2)
  - Accidental exposure to product [Recovering/Resolving]
  - Occupational exposure to product [Recovering/Resolving]

NARRATIVE: CASE EVENT DATE: 20241212
